FAERS Safety Report 21972932 (Version 1)
Quarter: 2023Q1

REPORT INFORMATION
  Report Type: Spontaneous
  Country: GB (occurrence: GB)
  Receive Date: 20230209
  Receipt Date: 20230209
  Transmission Date: 20230418
  Serious: Yes (Other)
  Sender: FDA-Public Use
  Company Number: GB-MYLANLABS-2023M1013807

PATIENT
  Age: 48 Year
  Sex: Male

DRUGS (5)
  1. BRINZOLAMIDE [Suspect]
     Active Substance: BRINZOLAMIDE
     Indication: Ocular hypertension
     Dosage: UNK
     Route: 047
  2. LATANOPROST [Suspect]
     Active Substance: LATANOPROST
     Indication: Ocular hypertension
     Dosage: UNK
     Route: 047
  3. PREDNISOLONE [Concomitant]
     Active Substance: PREDNISOLONE
     Indication: Polychondritis
     Dosage: UNK
     Route: 065
  4. METHOTREXATE [Concomitant]
     Active Substance: METHOTREXATE
     Indication: Polychondritis
     Dosage: UNK
     Route: 065
  5. METFORMIN [Concomitant]
     Active Substance: METFORMIN HYDROCHLORIDE
     Indication: Type 2 diabetes mellitus
     Dosage: UNK
     Route: 065

REACTIONS (1)
  - Drug ineffective [Unknown]
